FAERS Safety Report 15462397 (Version 1)
Quarter: 2018Q4

REPORT INFORMATION
  Report Type: Spontaneous
  Country: IE (occurrence: IE)
  Receive Date: 20181004
  Receipt Date: 20181004
  Transmission Date: 20190204
  Serious: Yes (Other)
  Sender: FDA-Public Use
  Company Number: IE-REGENERON PHARMACEUTICALS, INC.-2018-27510

PATIENT

DRUGS (3)
  1. INSULIN [Concomitant]
     Active Substance: INSULIN NOS
     Indication: DIABETES MELLITUS
  2. EYLEA [Suspect]
     Active Substance: AFLIBERCEPT
     Dosage: TOTAL 6 EYLEA DOSES TO RIGHT EYE, LAST DOSE WAS RECEIVED ON 09-MAY-2018
     Route: 031
     Dates: start: 20180509, end: 20180509
  3. EYLEA [Suspect]
     Active Substance: AFLIBERCEPT
     Indication: DIABETIC RETINAL OEDEMA
     Dosage: BILATERAL HOWEVER CURRENTLY IS ON RANIBIZUMAB FOR THE OTHER EYE
     Dates: start: 201505

REACTIONS (4)
  - Retinal detachment [Unknown]
  - Blindness [Recovered/Resolved]
  - Inadequate aseptic technique in use of product [Unknown]
  - Non-infectious endophthalmitis [Not Recovered/Not Resolved]

NARRATIVE: CASE EVENT DATE: 2018
